FAERS Safety Report 15298832 (Version 3)
Quarter: 2021Q2

REPORT INFORMATION
  Report Type: Spontaneous
  Country: US (occurrence: US)
  Receive Date: 20180821
  Receipt Date: 20210607
  Transmission Date: 20210716
  Serious: No
  Sender: FDA-Public Use
  Company Number: US-GLENMARK PHARMACEUTICALS-2018GMK036161

PATIENT

DRUGS (2)
  1. IMIQUIMOD. [Suspect]
     Active Substance: IMIQUIMOD
     Indication: ACTINIC KERATOSIS
     Dosage: UNK, HS (ONCE A DAY AT NIGHT FROM MONDAY TO FRIDAY)
     Route: 061
     Dates: start: 20180528, end: 20180613
  2. IMIQUIMOD. [Suspect]
     Active Substance: IMIQUIMOD
     Indication: SQUAMOUS CELL CARCINOMA OF SKIN

REACTIONS (10)
  - Lip exfoliation [Recovered/Resolved]
  - Skin discolouration [Recovered/Resolved]
  - Lip swelling [Recovered/Resolved]
  - Product use in unapproved indication [Unknown]
  - Throat lesion [Recovered/Resolved]
  - Oral disorder [Recovered/Resolved]
  - Lip pain [Recovered/Resolved]
  - Lip erythema [Recovered/Resolved]
  - Wound haemorrhage [Recovered/Resolved]
  - Chapped lips [Recovered/Resolved]

NARRATIVE: CASE EVENT DATE: 201806
